FAERS Safety Report 6158855-9 (Version None)
Quarter: 2009Q2

REPORT INFORMATION
  Report Type: 
  Country: None (occurrence: None)
  Receive Date: 20090417
  Receipt Date: 20090413
  Transmission Date: 20091009
  Serious: Yes (Other)
  Sender: FDA-Public Use
  Company Number: PHHY2009JP13996

PATIENT
  Age: 73 Year
  Sex: Male

DRUGS (13)
  1. COMTAN [Suspect]
     Indication: PARKINSON'S DISEASE
     Route: 048
  2. COMTAN [Suspect]
     Indication: DRUG EFFECT DECREASED
  3. HERBAL EXTRACTS NOS (BOFU-TSUSHO-SAN, DAI-KENCHU-TO) [Suspect]
     Route: 048
  4. GASMOTIN [Concomitant]
     Route: 048
  5. MAGLAX [Concomitant]
     Route: 048
  6. MADOPAR [Concomitant]
     Dosage: 400  MG
     Route: 048
  7. NAUZELIN [Concomitant]
     Route: 048
  8. SELEGILINE HCL [Concomitant]
     Route: 048
  9. PERMAX [Concomitant]
     Route: 048
  10. SYMMETREL [Concomitant]
     Dosage: 150 MG
     Route: 048
  11. DEPAS [Concomitant]
     Route: 048
  12. LENDORMIN [Concomitant]
     Route: 048
  13. EURODIN [Concomitant]
     Route: 048

REACTIONS (1)
  - GAMMA-GLUTAMYLTRANSFERASE INCREASED [None]
